FAERS Safety Report 6219800-0 (Version None)
Quarter: 2009Q2

REPORT INFORMATION
  Report Type: 
  Country: None (occurrence: None)
  Receive Date: 20090609
  Receipt Date: 20090527
  Transmission Date: 20091009
  Serious: Yes (Hospitalization)
  Sender: FDA-Public Use
  Company Number: FR-JNJFOC-20090602068

PATIENT
  Sex: Male

DRUGS (3)
  1. IXPRIM [Suspect]
     Indication: PAIN
     Route: 048
     Dates: start: 20090428, end: 20090504
  2. BI-PROFENID [Suspect]
     Indication: SCIATICA
     Route: 065
     Dates: start: 20090428, end: 20090504
  3. MYOLASTAN [Concomitant]
     Route: 065
     Dates: start: 20090428, end: 20090504

REACTIONS (4)
  - ANAEMIA [None]
  - GASTRODUODENAL ULCER [None]
  - HAEMATEMESIS [None]
  - MELAENA [None]
